FAERS Safety Report 23847877 (Version 1)
Quarter: 2024Q2

REPORT INFORMATION
  Report Type: Spontaneous
  Country: JP (occurrence: JP)
  Receive Date: 20240513
  Receipt Date: 20240513
  Transmission Date: 20240716
  Serious: Yes (Other)
  Sender: FDA-Public Use
  Company Number: JP-PFIZER INC-202400104130

PATIENT
  Sex: Male

DRUGS (3)
  1. PAXLOVID [Interacting]
     Active Substance: NIRMATRELVIR\RITONAVIR
     Indication: COVID-19 treatment
     Dosage: UNK
  2. PROGRAF [Interacting]
     Active Substance: TACROLIMUS
     Indication: Prophylaxis
  3. TRAZODONE HYDROCHLORIDE [Interacting]
     Active Substance: TRAZODONE HYDROCHLORIDE
     Indication: Depression

REACTIONS (5)
  - Chronic kidney disease [Recovered/Resolved]
  - Hyperkalaemia [Recovered/Resolved]
  - Electrocardiogram QT prolonged [Recovered/Resolved]
  - Metabolic acidosis [Recovered/Resolved]
  - Drug interaction [Recovered/Resolved]
